FAERS Safety Report 16939952 (Version 2)
Quarter: 2019Q4

REPORT INFORMATION
  Report Type: Spontaneous
  Country: US (occurrence: US)
  Receive Date: 20191021
  Receipt Date: 20191021
  Transmission Date: 20200122
  Serious: Yes (Life-Threatening, Hospitalization)
  Sender: FDA-Public Use
  Company Number: US-SHIRE-US201923590

PATIENT

DRUGS (3)
  1. NATPARA (PARATHYROID HORMONE) [Suspect]
     Active Substance: PARATHYROID HORMONE
     Indication: HYPOPARATHYROIDISM
     Dosage: 50 MICROGRAM, 1X/DAY:QD
     Route: 065
     Dates: start: 20181114
  2. NATPARA (PARATHYROID HORMONE) [Suspect]
     Active Substance: PARATHYROID HORMONE
     Dosage: 25 MICROGRAM, 1X/DAY:QD, INJECTION
     Route: 050
  3. NATPARA (PARATHYROID HORMONE) [Suspect]
     Active Substance: PARATHYROID HORMONE
     Dosage: 100 MICROGRAM, 1X/DAY:QD
     Route: 058

REACTIONS (3)
  - Hospitalisation [Unknown]
  - Hypocalcaemia [Unknown]
  - Recalled product [Unknown]
